FAERS Safety Report 18335390 (Version 1)
Quarter: 2020Q4

REPORT INFORMATION
  Report Type: Spontaneous
  Country: US (occurrence: US)
  Receive Date: 20201001
  Receipt Date: 20201001
  Transmission Date: 20210113
  Serious: No
  Sender: FDA-Public Use
  Company Number: NVSC2020US264298

PATIENT
  Sex: Female

DRUGS (1)
  1. RECLAST [Suspect]
     Active Substance: ZOLEDRONIC ACID
     Indication: PRODUCT USED FOR UNKNOWN INDICATION
     Dosage: UNK
     Route: 065
     Dates: start: 20200922

REACTIONS (14)
  - Skin fissures [Unknown]
  - Migraine [Unknown]
  - Insomnia [Unknown]
  - Back pain [Unknown]
  - Fatigue [Unknown]
  - Ehlers-Danlos syndrome [Unknown]
  - Cough [Unknown]
  - Abdominal pain [Unknown]
  - Condition aggravated [Unknown]
  - Nausea [Unknown]
  - Oropharyngeal pain [Unknown]
  - Dizziness [Unknown]
  - Injury [Unknown]
  - Neck pain [Unknown]
